FAERS Safety Report 13834127 (Version 1)
Quarter: 2017Q3

REPORT INFORMATION
  Report Type: Spontaneous
  Country: FR (occurrence: FR)
  Receive Date: 20170804
  Receipt Date: 20170804
  Transmission Date: 20171127
  Serious: Yes (Other)
  Sender: FDA-Public Use
  Company Number: FR-AMGEN-FRASP2017116172

PATIENT
  Age: 72 Year
  Sex: Male

DRUGS (9)
  1. ONDANSETRON ACCORD [Concomitant]
     Active Substance: ONDANSETRON
     Dosage: UNK
  2. POLARAMINE [Concomitant]
     Active Substance: DEXCHLORPHENIRAMINE MALEATE
     Dosage: UNK
     Route: 042
     Dates: start: 20170221
  3. FOLINIC ACID [Suspect]
     Active Substance: LEUCOVORIN
     Indication: ADENOCARCINOMA OF COLON
     Dosage: UNK
     Route: 065
     Dates: start: 201702
  4. FLUOROURACIL ACCORD [Suspect]
     Active Substance: FLUOROURACIL
     Indication: ADENOCARCINOMA OF COLON
     Dosage: UNK
     Route: 042
     Dates: start: 20170221
  5. OXALIPLATIN. [Concomitant]
     Active Substance: OXALIPLATIN
     Indication: ADENOCARCINOMA OF COLON
     Dosage: UNK
     Dates: start: 201702, end: 201704
  6. SOLU-MEDROL [Concomitant]
     Active Substance: METHYLPREDNISOLONE SODIUM SUCCINATE
     Dosage: UNK
     Route: 042
     Dates: start: 20170221
  7. CALCIUM LEVOFOLINATE [Concomitant]
     Active Substance: LEVOLEUCOVORIN CALCIUM
     Dosage: 400 MG, Q2WK
     Route: 042
     Dates: start: 20170221
  8. DOXYCYCLINE. [Suspect]
     Active Substance: DOXYCYCLINE
     Indication: PRODUCT USED FOR UNKNOWN INDICATION
     Dosage: 100 MG, QD
     Route: 048
     Dates: start: 20170403
  9. VECTIBIX [Suspect]
     Active Substance: PANITUMUMAB
     Indication: ADENOCARCINOMA OF COLON
     Dosage: 580 MG, Q2WK
     Route: 042
     Dates: start: 20170221

REACTIONS (2)
  - Ectropion [Not Recovered/Not Resolved]
  - Eyelid ptosis [Not Recovered/Not Resolved]

NARRATIVE: CASE EVENT DATE: 20170514
